FAERS Safety Report 4594774-7 (Version None)
Quarter: 2005Q1

REPORT INFORMATION
  Report Type: 
  Country: None (occurrence: None)
  Receive Date: 20050223
  Receipt Date: 20050208
  Transmission Date: 20050727
  Serious: Yes (Death)
  Sender: FDA-Public Use
  Company Number: AZAUS200500052

PATIENT
  Age: 48 Year
  Sex: Female
  Weight: 51.7101 kg

DRUGS (2)
  1. VIDAZA [Suspect]
     Indication: MYELODYSPLASTIC SYNDROME
     Dosage: 50 MG/M2 (75 MG, ONCE DAILY), SUBCUTANEOUS
     Route: 058
     Dates: start: 20041206, end: 20050110
  2. PROCRIT (ERYTHROPOIETIN) [Concomitant]

REACTIONS (10)
  - BACK PAIN [None]
  - CARDIAC ARREST [None]
  - HAEMATOCRIT DECREASED [None]
  - HAEMATOMA [None]
  - HAEMORRHAGE INTRACRANIAL [None]
  - HEADACHE [None]
  - INCREASED TENDENCY TO BRUISE [None]
  - PARAESTHESIA ORAL [None]
  - THROMBOCYTOPENIA [None]
  - VOMITING [None]
